FAERS Safety Report 4864021-7 (Version None)
Quarter: 2005Q4

REPORT INFORMATION
  Report Type: 
  Country: None (occurrence: None)
  Receive Date: 20051219
  Receipt Date: 20051207
  Transmission Date: 20060501
  Serious: Yes (Hospitalization)
  Sender: FDA-Public Use
  Company Number: 2005161762

PATIENT
  Age: 43 Year
  Sex: Male

DRUGS (1)
  1. DILANTIN KAPSEAL [Suspect]
     Indication: EPILEPSY
     Dosage: 300 MG (100 MG, 3 IN 1 D) ORAL
     Route: 048
     Dates: start: 19950101

REACTIONS (7)
  - ANGIOPATHY [None]
  - ASTHENIA [None]
  - CEREBRAL HAEMORRHAGE [None]
  - HEADACHE [None]
  - PENIS DISORDER [None]
  - SENSORY LOSS [None]
  - SEXUAL DYSFUNCTION [None]
